FAERS Safety Report 13660254 (Version 1)
Quarter: 2017Q2

REPORT INFORMATION
  Report Type: Spontaneous
  Country: US (occurrence: US)
  Receive Date: 20170615
  Receipt Date: 20170615
  Transmission Date: 20170830
  Serious: No
  Sender: FDA-Public Use
  Company Number: None

PATIENT
  Age: 25 Year
  Sex: Female

DRUGS (1)
  1. HUMIRA [Suspect]
     Active Substance: ADALIMUMAB
     Indication: PSORIASIS
     Dosage: 80MG / 40MG DAY 1 / DAY 8 SQ
     Route: 058
     Dates: start: 20170524, end: 20170610

REACTIONS (4)
  - Chest pain [None]
  - Injection site warmth [None]
  - Injection site swelling [None]
  - Injection site erythema [None]
